FAERS Safety Report 17258378 (Version 1)
Quarter: 2019Q4

REPORT INFORMATION
  Report Type: Spontaneous
  Country: US (occurrence: US)
  Receive Date: 20191217
  Receipt Date: 20191217
  Transmission Date: 20200122
  Serious: Yes (Hospitalization)
  Sender: FDA-Public Use
  Company Number: None

PATIENT
  Age: 73 Year
  Sex: Female

DRUGS (8)
  1. METOROL SUC ER [Concomitant]
  2. EZETIMIBE. [Concomitant]
     Active Substance: EZETIMIBE
  3. REPATHA [Suspect]
     Active Substance: EVOLOCUMAB
     Indication: TYPE IIA HYPERLIPIDAEMIA
     Dosage: ?          OTHER FREQUENCY:EVERY14DAY ;?
     Route: 058
  4. AMIODARONE [Concomitant]
     Active Substance: AMIODARONE
  5. LISINOPRIL. [Concomitant]
     Active Substance: LISINOPRIL
  6. WARFIB [Concomitant]
  7. ISOSORB MONO [Concomitant]
     Active Substance: ISOSORBIDE MONONITRATE
  8. DIGOX [Concomitant]
     Active Substance: DIGOXIN

REACTIONS (2)
  - Therapy cessation [None]
  - Urinary tract infection [None]

NARRATIVE: CASE EVENT DATE: 20191101
